FAERS Safety Report 7440613-6 (Version None)
Quarter: 2011Q2

REPORT INFORMATION
  Report Type: 
  Country: None (occurrence: None)
  Receive Date: 20110427
  Receipt Date: 20110420
  Transmission Date: 20111010
  Serious: Yes (Hospitalization)
  Sender: FDA-Public Use
  Company Number: B0715021A

PATIENT
  Age: 58 Year
  Sex: Female
  Weight: 45 kg

DRUGS (12)
  1. PYDOXAL [Concomitant]
     Dosage: 60MG PER DAY
     Route: 048
     Dates: start: 20060605, end: 20060628
  2. MAGMITT [Concomitant]
     Dosage: 990MG PER DAY
     Route: 048
     Dates: start: 20060605, end: 20060609
  3. ALKERAN [Suspect]
     Indication: STEM CELL TRANSPLANT
     Dosage: 127MGM2 PER DAY
     Route: 042
     Dates: start: 20060606, end: 20060607
  4. METHYCOBAL [Concomitant]
     Dosage: 1500MCG PER DAY
     Route: 048
     Dates: start: 20060605, end: 20060628
  5. LENDORMIN [Concomitant]
     Dosage: .25MG PER DAY
     Route: 048
     Dates: start: 20060605, end: 20060628
  6. PROTECADIN [Concomitant]
     Dosage: 20MG PER DAY
     Route: 048
     Dates: start: 20060605, end: 20060628
  7. ONEALFA [Concomitant]
     Dosage: 1MCG PER DAY
     Route: 048
     Dates: start: 20060605, end: 20060628
  8. SEROTONE [Concomitant]
     Dosage: 10MG PER DAY
     Dates: start: 20060606, end: 20060607
  9. ISONIAZID [Concomitant]
     Dosage: 300MG PER DAY
     Route: 048
     Dates: start: 20060605, end: 20060628
  10. FUNGUARD [Concomitant]
     Dosage: 50MG PER DAY
     Route: 042
     Dates: start: 20060605, end: 20060609
  11. GRAN [Concomitant]
     Dates: start: 20060609, end: 20060619
  12. ZOVIRAX [Concomitant]
     Dosage: 1000MG PER DAY
     Route: 048
     Dates: start: 20060605, end: 20060628

REACTIONS (1)
  - FEBRILE NEUTROPENIA [None]
